FAERS Safety Report 12428734 (Version 2)
Quarter: 2016Q3

REPORT INFORMATION
  Report Type: Spontaneous
  Country: US (occurrence: US)
  Receive Date: 20160602
  Receipt Date: 20160729
  Transmission Date: 20161109
  Serious: Yes (Hospitalization, Other)
  Sender: FDA-Public Use
  Company Number: US-NOVOPROD-494059

PATIENT
  Age: 26 Year
  Sex: Female
  Weight: 88.44 kg

DRUGS (1)
  1. NOVOLOG [Suspect]
     Active Substance: INSULIN ASPART
     Indication: TYPE 1 DIABETES MELLITUS
     Dosage: SLIDING SCALE QID
     Route: 058
     Dates: start: 200706

REACTIONS (5)
  - Balance disorder [Recovered/Resolved]
  - Deafness [Recovered/Resolved]
  - Blood glucose increased [Recovered/Resolved]
  - Blindness [Recovered/Resolved]
  - Product quality issue [Recovered/Resolved]

NARRATIVE: CASE EVENT DATE: 20160520
